FAERS Safety Report 8377374 (Version 2)
Quarter: 2013Q1

REPORT INFORMATION
  Report Type: Report from Study
  Country: FR (occurrence: FR)
  Receive Date: 20120129
  Receipt Date: 20130328
  Transmission Date: 20140127
  Serious: Yes (Hospitalization)
  Sender: FDA-Public Use
  Company Number: FR-BRISTOL-MYERS SQUIBB COMPANY-16358616

PATIENT
  Age: 60 Year
  Sex: Male
  Weight: 61 kg

DRUGS (2)
  1. CISPLATIN [Suspect]
     Indication: NON-SMALL CELL LUNG CANCER
     Dosage: 21DAYS/CYCLE
     Route: 042
     Dates: start: 20110207
  2. GEMCITABINE HCL [Suspect]
     Indication: NON-SMALL CELL LUNG CANCER
     Dosage: FORMLATION-VIAL.21DAYS/CYCLE.LAST DOSE ON 14FEB2011.
     Route: 042
     Dates: start: 20110207

REACTIONS (1)
  - Haemoptysis [Recovered/Resolved]
